FAERS Safety Report 22967389 (Version 3)
Quarter: 2023Q4

REPORT INFORMATION
  Report Type: Report from Study
  Country: US (occurrence: US)
  Receive Date: 20230921
  Receipt Date: 20231018
  Transmission Date: 20240109
  Serious: No
  Sender: FDA-Public Use
  Company Number: US-SA-SAC20230915001299

PATIENT
  Age: 63 Year
  Sex: Male
  Weight: 69.8 kg

DRUGS (2)
  1. IMIGLUCERASE [Suspect]
     Active Substance: IMIGLUCERASE
     Indication: Gaucher^s disease
     Dosage: 4800 U, QOW
     Route: 042
     Dates: start: 20020124, end: 2023
  2. IMIGLUCERASE [Suspect]
     Active Substance: IMIGLUCERASE
     Dosage: 4800 U, QOW
     Route: 042
     Dates: start: 202309

REACTIONS (5)
  - Weight decreased [Unknown]
  - Oral pain [Unknown]
  - Tooth extraction [Unknown]
  - Malaise [Unknown]
  - Tooth restoration [Unknown]

NARRATIVE: CASE EVENT DATE: 20230101
